FAERS Safety Report 8125852-3 (Version None)
Quarter: 2012Q1

REPORT INFORMATION
  Report Type: 
  Country: None (occurrence: None)
  Receive Date: 20120206
  Receipt Date: 20120206
  Transmission Date: 20120608
  Serious: Yes (Other)
  Sender: FDA-Public Use
  Company Number: 1022556-2012-00008

PATIENT
  Age: 40 Year
  Sex: Male

DRUGS (1)
  1. CAPZASIN - GENERIC [Suspect]
     Indication: MYALGIA
     Dosage: TOPICAL
     Route: 061

REACTIONS (3)
  - PAIN [None]
  - APPLICATION SITE BURN [None]
  - BLISTER [None]
